FAERS Safety Report 4266848-1 (Version None)
Quarter: 2004Q1

REPORT INFORMATION
  Report Type: 
  Country: None (occurrence: None)
  Receive Date: 20040108
  Receipt Date: 20020516
  Transmission Date: 20041129
  Serious: Yes (Hospitalization, Other)
  Sender: FDA-Public Use
  Company Number: WAES 0205USA02050

PATIENT
  Age: 69 Year
  Sex: Female
  Weight: 114 kg

DRUGS (1)
  1. VIOXX [Suspect]
     Route: 048
     Dates: end: 20010101

REACTIONS (23)
  - ABDOMINAL PAIN UPPER [None]
  - AORTIC ATHEROSCLEROSIS [None]
  - AORTIC VALVE INCOMPETENCE [None]
  - ASTHMA [None]
  - BODY TINEA [None]
  - BRONCHITIS [None]
  - CARDIAC FAILURE CONGESTIVE [None]
  - CARDIOMEGALY [None]
  - CAROTID ARTERY STENOSIS [None]
  - CELLULITIS [None]
  - CHRONIC OBSTRUCTIVE AIRWAYS DISEASE EXACERBATED [None]
  - FOOT FRACTURE [None]
  - GASTROENTERITIS [None]
  - HYPERTENSION [None]
  - LYMPHADENOPATHY MEDIASTINAL [None]
  - NAUSEA [None]
  - PAIN IN EXTREMITY [None]
  - SINUS BRADYCARDIA [None]
  - SKIN PAPILLOMA [None]
  - VASCULAR CALCIFICATION [None]
  - VERTIGO [None]
  - VITAL CAPACITY DECREASED [None]
  - WHITE BLOOD CELL COUNT INCREASED [None]
